FAERS Safety Report 8801906 (Version 1)
Quarter: 2012Q4

REPORT INFORMATION
  Report Type: 
  Country: CH (occurrence: CH)
  Receive Date: 20120921
  Receipt Date: 20120921
  Transmission Date: 20130627
  Serious: Yes (Hospitalization)
  Sender: FDA-Public Use
  Company Number: CH-PFIZER INC-2012230879

PATIENT
  Age: 53 Year
  Sex: Male

DRUGS (5)
  1. LYRICA [Suspect]
     Indication: DEPRESSION
     Dosage: 150 mg, 1x/day
     Route: 048
  2. LEPONEX / CLOZARIL [Interacting]
     Indication: DEPRESSION
     Dosage: 200 mg, 1x/day
     Route: 048
     Dates: start: 20120626, end: 20120626
  3. LEPONEX / CLOZARIL [Interacting]
     Dosage: UNK
  4. SAROTEN [Interacting]
     Indication: DEPRESSION
     Dosage: 50 mg, 4x/day
     Route: 048
  5. ZOLPIDEM [Interacting]
     Dosage: 10 mg, 1x/day
     Route: 048

REACTIONS (5)
  - Drug interaction [Recovered/Resolved]
  - Medication error [Recovered/Resolved]
  - Somnolence [Recovered/Resolved]
  - Electrocardiogram QT prolonged [Recovered/Resolved]
  - Extrasystoles [Recovered/Resolved]
